FAERS Safety Report 25046472 (Version 2)
Quarter: 2025Q1

REPORT INFORMATION
  Report Type: Spontaneous
  Country: DE (occurrence: DE)
  Receive Date: 20250306
  Receipt Date: 20250326
  Transmission Date: 20250408
  Serious: Yes (Hospitalization, Other)
  Sender: NOVARTIS
  Company Number: DE-002147023-NVSC2025DE035538

PATIENT
  Sex: Female
  Weight: 40 kg

DRUGS (2)
  1. KESIMPTA [Suspect]
     Active Substance: OFATUMUMAB
     Indication: Relapsing-remitting multiple sclerosis
     Dosage: 20 MG, QMO
     Route: 058
     Dates: start: 20240208, end: 20240227
  2. Etorex [Concomitant]
     Indication: Autoimmune thyroiditis
     Dosage: 75 MG, QD
     Route: 048
     Dates: start: 20231023

REACTIONS (2)
  - Thyroid cancer [Not Recovered/Not Resolved]
  - Tumour marker increased [Not Recovered/Not Resolved]

NARRATIVE: CASE EVENT DATE: 20250220
